APPROVED DRUG PRODUCT: HYDROCHLOROTHIAZIDE
Active Ingredient: HYDROCHLOROTHIAZIDE
Strength: 50MG
Dosage Form/Route: TABLET;ORAL
Application: A088828 | Product #001
Applicant: SUPERPHARM CORP
Approved: Dec 28, 1984 | RLD: No | RS: No | Type: DISCN